FAERS Safety Report 24676711 (Version 1)
Quarter: 2024Q4

REPORT INFORMATION
  Report Type: Spontaneous
  Country: CN (occurrence: CN)
  Receive Date: 20241128
  Receipt Date: 20241128
  Transmission Date: 20250115
  Serious: Yes (Hospitalization, Other)
  Sender: JIANGSU HENGRUI MEDICINE CO., LTD.
  Company Number: CN-Jiangsu Hengrui Medicine Co., Ltd.-2166177

PATIENT
  Age: 72 Year
  Sex: Female
  Weight: 54 kg

DRUGS (3)
  1. PACLITAXEL [Suspect]
     Active Substance: PACLITAXEL
     Indication: Uterine cancer
     Dates: start: 20240731, end: 20240731
  2. TORIPALIMAB [Suspect]
     Active Substance: TORIPALIMAB
     Dates: start: 20240731, end: 20240731
  3. CISPLATIN [Suspect]
     Active Substance: CISPLATIN
     Dates: start: 20240731, end: 20240731

REACTIONS (1)
  - Drug eruption [Recovering/Resolving]

NARRATIVE: CASE EVENT DATE: 20240801
